FAERS Safety Report 7620628-5 (Version None)
Quarter: 2011Q3

REPORT INFORMATION
  Report Type: 
  Country: None (occurrence: None)
  Receive Date: 20110719
  Receipt Date: 20110706
  Transmission Date: 20111222
  Serious: Yes (Other)
  Sender: FDA-Public Use
  Company Number: US-UCBSA-025027

PATIENT
  Sex: Female
  Weight: 99.79 kg

DRUGS (9)
  1. SYNTHROID [Concomitant]
     Route: 048
  2. DYAZIDE [Concomitant]
     Dosage: 37.5-25 MG
     Route: 048
  3. BUDESONIDE [Concomitant]
     Indication: CROHN'S DISEASE
     Dates: start: 20050501
  4. IBUPROFEN [Concomitant]
     Indication: CROHN'S DISEASE
  5. CIMZIA [Suspect]
     Indication: CROHN'S DISEASE
     Route: 058
     Dates: start: 20101006, end: 20101229
  6. CORTICOSTEROIDS [Concomitant]
     Indication: CROHN'S DISEASE
  7. ACETAMINOPHEN [Concomitant]
     Indication: CROHN'S DISEASE
  8. IMMUNOSUPPRESSANTS [Concomitant]
     Indication: CROHN'S DISEASE
  9. OMEPRAZOLE [Concomitant]
     Route: 048

REACTIONS (4)
  - RASH PRURITIC [None]
  - INSOMNIA [None]
  - HYPERSENSITIVITY [None]
  - NEUROLOGICAL SYMPTOM [None]
